FAERS Safety Report 14759567 (Version 1)
Quarter: 2018Q2

REPORT INFORMATION
  Report Type: Spontaneous
  Country: US (occurrence: US)
  Receive Date: 20180413
  Receipt Date: 20180413
  Transmission Date: 20180711
  Serious: Yes (Hospitalization)
  Sender: FDA-Public Use
  Company Number: PHHY2018US063362

PATIENT
  Age: 40 Year
  Sex: Male

DRUGS (2)
  1. LINEZOLID. [Suspect]
     Active Substance: LINEZOLID
     Indication: EMPYEMA
     Dosage: UNK
     Route: 065
  2. LINEZOLID. [Suspect]
     Active Substance: LINEZOLID
     Indication: STAPHYLOCOCCAL INFECTION

REACTIONS (3)
  - Treatment failure [Unknown]
  - Osteomyelitis [Unknown]
  - Empyema [Unknown]
